FAERS Safety Report 20039764 (Version 1)
Quarter: 2021Q4

REPORT INFORMATION
  Report Type: Spontaneous
  Country: NL (occurrence: NL)
  Receive Date: 20211106
  Receipt Date: 20211106
  Transmission Date: 20220304
  Serious: Yes (Hospitalization, Other)
  Sender: FDA-Public Use
  Company Number: NL-AUROBINDO-AUR-APL-2018-051242

PATIENT
  Age: 71 Year
  Sex: Female

DRUGS (14)
  1. METHOTREXATE [Suspect]
     Active Substance: METHOTREXATE
     Indication: Acute lymphocytic leukaemia
     Dosage: 15 MILLIGRAM(15 MILLIGRAM, UNK)
     Route: 048
     Dates: start: 20170706, end: 20170706
  2. METHOTREXATE [Suspect]
     Active Substance: METHOTREXATE
     Dosage: 15 MILLIGRAM(15 MILLIGRAM, UNK)
     Route: 037
     Dates: start: 20170706, end: 20170706
  3. PREDNISOLONE [Suspect]
     Active Substance: PREDNISOLONE
     Indication: Product used for unknown indication
     Dosage: 65 MILLIGRAM(65 MILLIGRAM, UNK)
     Route: 065
     Dates: start: 20171030, end: 20171105
  4. CYTARABINE [Suspect]
     Active Substance: CYTARABINE
     Indication: Acute lymphocytic leukaemia
     Dosage: 3247 MILLIGRAM(3247 MG, UNK)
     Route: 065
     Dates: start: 20170622, end: 20170623
  5. MERCAPTOPURINE [Suspect]
     Active Substance: MERCAPTOPURINE
     Indication: Product used for unknown indication
     Dosage: 100 MILLIGRAM(100 MILLIGRAM, UNK)
     Route: 065
     Dates: start: 20171030, end: 20171111
  6. PEGASPARGASE [Suspect]
     Active Substance: PEGASPARGASE
     Indication: Acute lymphocytic leukaemia
     Dosage: 1624 INTERNATIONAL UNIT, 1624 IU, UNK
     Route: 042
     Dates: start: 20170624, end: 20170624
  7. CLOFARABINE [Suspect]
     Active Substance: CLOFARABINE
     Indication: Acute lymphocytic leukaemia
     Dosage: 48.78 MILLIGRAM, ONCE A DAY, 48.78 MG, QD
     Route: 042
     Dates: start: 20170110, end: 20170114
  8. DEXAMETHASONE [Suspect]
     Active Substance: DEXAMETHASONE
     Indication: Acute lymphocytic leukaemia
     Dosage: 25 MILLIGRAM, ONCE A DAY
     Route: 037
     Dates: start: 20170706, end: 20170706
  9. Bromhexine hydrochloride;Chlorphenamine maleate;Paracetamol;Phenylephr [Concomitant]
     Indication: Product used for unknown indication
     Dosage: 600 MILLIGRAM, 3 TIMES A DAY, 600MG, TID
     Route: 065
  10. CLINDAMYCIN HYDROCHLORIDE [Concomitant]
     Active Substance: CLINDAMYCIN HYDROCHLORIDE
     Indication: Product used for unknown indication
     Dosage: 600 MILLIGRAM, 3X600 MG
     Route: 048
  11. CLINDAMYCIN [Concomitant]
     Active Substance: CLINDAMYCIN
     Indication: Product used for unknown indication
     Dosage: 600 MILLIGRAM, 600 MG, 3X600 MG
     Route: 048
  12. Dolocin [Concomitant]
     Indication: Product used for unknown indication
     Dosage: UNK
     Route: 065
  13. DOXYCYCLINE HYDROCHLORIDE [Concomitant]
     Active Substance: DOXYCYCLINE HYDROCHLORIDE
     Indication: Product used for unknown indication
     Dosage: UNK
     Route: 065
  14. VANCOMYCIN [Concomitant]
     Active Substance: VANCOMYCIN
     Indication: Staphylococcal infection
     Dosage: UNK
     Route: 065

REACTIONS (3)
  - Febrile neutropenia [Recovered/Resolved]
  - Staphylococcal bacteraemia [Recovered/Resolved]
  - Staphylococcal sepsis [Recovered/Resolved]

NARRATIVE: CASE EVENT DATE: 20170710
